FAERS Safety Report 18742603 (Version 1)
Quarter: 2021Q1

REPORT INFORMATION
  Report Type: Spontaneous
  Country: US (occurrence: US)
  Receive Date: 20210114
  Receipt Date: 20210114
  Transmission Date: 20210419
  Serious: No
  Sender: FDA-Public Use
  Company Number: US-STRONGBRIDGE BIOPHARMA-2021-STR-000003

PATIENT
  Age: 20 Year
  Sex: Male

DRUGS (1)
  1. KEVEYIS [Suspect]
     Active Substance: DICHLORPHENAMIDE
     Indication: FAMILIAL PERIODIC PARALYSIS
     Dosage: 50 MG, QD
     Route: 048
     Dates: start: 20201220

REACTIONS (7)
  - Decreased appetite [Unknown]
  - Vomiting [Unknown]
  - Myalgia [Unknown]
  - Weight decreased [Unknown]
  - Headache [Unknown]
  - Nausea [Unknown]
  - Confusional state [Unknown]

NARRATIVE: CASE EVENT DATE: 20210104
